FAERS Safety Report 17235848 (Version 2)
Quarter: 2020Q1

REPORT INFORMATION
  Report Type: Spontaneous
  Country: JP (occurrence: JP)
  Receive Date: 20200106
  Receipt Date: 20200117
  Transmission Date: 20200409
  Serious: Yes (Other)
  Sender: FDA-Public Use
  Company Number: JP-TEVA-2019-JP-1162861

PATIENT
  Age: 36 Year
  Sex: Female

DRUGS (7)
  1. MITOTANE [Suspect]
     Active Substance: MITOTANE
     Dosage: 4 GRAM DAILY;
     Route: 065
  2. MITOTANE [Suspect]
     Active Substance: MITOTANE
     Dosage: REDUCED TO 2-3 G/DAY
     Route: 065
  3. ETOPOSIDE. [Suspect]
     Active Substance: ETOPOSIDE
     Indication: ADRENOCORTICAL CARCINOMA
     Dosage: ON DAY 2, 3 AND 4; A TOTAL OF 4 COURSES WERE CONDUCTED
     Route: 065
  4. MITOTANE [Suspect]
     Active Substance: MITOTANE
     Indication: METASTASES TO LUNG
     Dosage: 1 GRAM DAILY;
     Route: 065
  5. HYDROCORTISONE. [Concomitant]
     Active Substance: HYDROCORTISONE
     Indication: METASTASES TO LUNG
     Route: 065
  6. DOXORUBICIN [Suspect]
     Active Substance: DOXORUBICIN
     Indication: ADRENOCORTICAL CARCINOMA
     Dosage: ON DAY 1; A TOTAL OF 4 COURSES WERE CONDUCTED
     Route: 065
  7. CISPLATIN. [Suspect]
     Active Substance: CISPLATIN
     Indication: ADRENOCORTICAL CARCINOMA
     Dosage: ON DAY 3 AND 4; A TOTAL OF 4 COURSES WERE CONDUCTED
     Route: 065

REACTIONS (3)
  - Gastrointestinal disorder [Unknown]
  - Diarrhoea [Unknown]
  - Cytopenia [Unknown]
